FAERS Safety Report 6032666-7 (Version None)
Quarter: 2009Q1

REPORT INFORMATION
  Report Type: 
  Country: None (occurrence: None)
  Receive Date: 20090109
  Receipt Date: 20090104
  Transmission Date: 20090719
  Serious: Yes (Disabling)
  Sender: FDA-Public Use
  Company Number: SA-JNJFOC-20090100373

PATIENT
  Age: 12 Year
  Sex: Male
  Weight: 65 kg

DRUGS (3)
  1. RISPERDAL [Suspect]
     Indication: MENTAL RETARDATION
     Route: 048
  2. RISPERDAL [Suspect]
     Indication: AUTISM
     Dosage: 1.5 TO 2 MG
     Route: 048
  3. CONCERTA [Suspect]
     Indication: PSYCHOMOTOR HYPERACTIVITY
     Route: 065

REACTIONS (2)
  - CHOREOATHETOSIS [None]
  - THERAPY CESSATION [None]
